FAERS Safety Report 4366211-9 (Version None)
Quarter: 2004Q2

REPORT INFORMATION
  Report Type: 
  Country: None (occurrence: None)
  Receive Date: 20040527
  Receipt Date: 20040212
  Transmission Date: 20050107
  Serious: No
  Sender: FDA-Public Use
  Company Number: US-BRISTOL-MYERS SQUIBB COMPANY-12520144

PATIENT
  Age: 53 Year
  Sex: Male
  Weight: 165 kg

DRUGS (3)
  1. DEFINITY [Suspect]
     Dosage: 1.3 CC DEFINITY IN 8.7 CC SALINE, GIVEN AT 15:30
     Route: 042
     Dates: start: 20040212
  2. PREDNISOLONE [Concomitant]
     Indication: EYE DISORDER
  3. OPHTHALMIC SOLUTION [Concomitant]
     Dosage: LEFT EYE
     Route: 047

REACTIONS (4)
  - HOT FLUSH [None]
  - OEDEMA PERIPHERAL [None]
  - PARAESTHESIA [None]
  - THROAT IRRITATION [None]
